FAERS Safety Report 17172802 (Version 5)
Quarter: 2020Q1

REPORT INFORMATION
  Report Type: Spontaneous
  Country: CN (occurrence: CN)
  Receive Date: 20191218
  Receipt Date: 20200106
  Transmission Date: 20200409
  Serious: Yes (Death, Other)
  Sender: FDA-Public Use
  Company Number: CN-B.I. PHARMACEUTICALS,INC./RIDGEFIELD-2019-MI-120429

PATIENT
  Age: 13 Day
  Sex: Female

DRUGS (3)
  1. CEFOPERAZONE;SULBACTAM SODIUM [Concomitant]
     Indication: PRODUCT USED FOR UNKNOWN INDICATION
     Route: 042
  2. COMBIVENT [Suspect]
     Active Substance: ALBUTEROL SULFATE\IPRATROPIUM BROMIDE
     Indication: INTERSTITIAL LUNG DISEASE
     Dosage: UNIT DOSE LIQUID, 1.25ML QD, VIA - AEROSOL INHALATION
     Route: 055
     Dates: start: 20190716, end: 20190716
  3. COMBIVENT [Suspect]
     Active Substance: ALBUTEROL SULFATE\IPRATROPIUM BROMIDE
     Indication: PNEUMONIA

REACTIONS (3)
  - Cardiac failure [Fatal]
  - Off label use [Unknown]
  - Arrhythmia [Unknown]

NARRATIVE: CASE EVENT DATE: 20190716
